FAERS Safety Report 10273899 (Version 1)
Quarter: 2014Q2

REPORT INFORMATION
  Report Type: Spontaneous
  Country: US (occurrence: None)
  Receive Date: 20140630
  Receipt Date: 20140630
  Transmission Date: 20141212
  Serious: No
  Sender: FDA-Public Use
  Company Number: None

PATIENT
  Age: 27 Year
  Sex: Male

DRUGS (1)
  1. HUMIRA [Suspect]
     Indication: RHEUMATOID ARTHRITIS
     Dosage: HUMIRA 40MG/0.8 ML  EVERY 14 DAYS SUBCUTANEOUSLY
     Route: 058
     Dates: start: 20140527

REACTIONS (1)
  - Blood pressure increased [None]
